FAERS Safety Report 21777371 (Version 2)
Quarter: 2022Q4

REPORT INFORMATION
  Report Type: Report from Study
  Country: US (occurrence: US)
  Receive Date: 20221226
  Receipt Date: 20221229
  Transmission Date: 20230112
  Serious: Yes (Other)
  Sender: FDA-Public Use
  Company Number: US-ABBVIE-4249443

PATIENT
  Age: 45 Year
  Sex: Female

DRUGS (1)
  1. HUMIRA [Suspect]
     Active Substance: ADALIMUMAB
     Indication: Product used for unknown indication
     Dosage: FORM STRENGTH- 40 MG
     Route: 058
     Dates: start: 20220915

REACTIONS (2)
  - Hysterectomy [Unknown]
  - Discomfort [Unknown]

NARRATIVE: CASE EVENT DATE: 20221126
